FAERS Safety Report 19643548 (Version 2)
Quarter: 2021Q3

REPORT INFORMATION
  Report Type: Spontaneous
  Country: IT (occurrence: IT)
  Receive Date: 20210730
  Receipt Date: 20210917
  Transmission Date: 20211014
  Serious: Yes (Hospitalization, Other)
  Sender: FDA-Public Use
  Company Number: IT-B.I. PHARMACEUTICALS,INC./RIDGEFIELD-2021-BI-118643

PATIENT
  Age: 85 Year
  Sex: Male

DRUGS (1)
  1. PRADAXA [Suspect]
     Active Substance: DABIGATRAN ETEXILATE MESYLATE
     Indication: ATRIAL FIBRILLATION
     Dates: end: 20210630

REACTIONS (4)
  - Cerebral haemorrhage [Unknown]
  - Subdural haematoma [Unknown]
  - Subarachnoid haemorrhage [Unknown]
  - Brain oedema [Unknown]

NARRATIVE: CASE EVENT DATE: 20210630
